FAERS Safety Report 5058561-8 (Version None)
Quarter: 2006Q2

REPORT INFORMATION
  Report Type: 
  Country: None (occurrence: None)
  Receive Date: 20060627
  Receipt Date: 20060102
  Transmission Date: 20061013
  Serious: Yes (Other)
  Sender: FDA-Public Use
  Company Number: 430620

PATIENT
  Age: 70 Year
  Sex: Male
  Weight: 74.8 kg

DRUGS (4)
  1. XELODA [Suspect]
     Indication: NON-SMALL CELL LUNG CANCER
     Dosage: 500 MG 2 PER DAY ORAL
     Route: 048
     Dates: start: 20050405, end: 20051110
  2. AVASTIN [Concomitant]
  3. TAXOTERE [Concomitant]
  4. CARBOPLATIN [Concomitant]

REACTIONS (2)
  - EYE IRRITATION [None]
  - LACRIMATION INCREASED [None]
